FAERS Safety Report 7233359-0 (Version None)
Quarter: 2011Q1

REPORT INFORMATION
  Report Type: 
  Country: None (occurrence: None)
  Receive Date: 20110119
  Receipt Date: 20110113
  Transmission Date: 20110831
  Serious: Yes (Death, Life-Threatening, Hospitalization)
  Sender: FDA-Public Use
  Company Number: GB-CELGENEUS-167-C5013-10121453

PATIENT
  Sex: Male
  Weight: 58.9 kg

DRUGS (20)
  1. METFORMIN [Concomitant]
     Route: 048
     Dates: start: 20060925
  2. LACTULOSE [Concomitant]
     Indication: CONSTIPATION
     Route: 048
     Dates: start: 20060912
  3. TAMSULOSIN [Concomitant]
     Route: 048
     Dates: start: 20080102
  4. GLICAZIDE [Concomitant]
     Route: 048
     Dates: start: 20031027
  5. CC-5013 [Suspect]
     Route: 048
     Dates: start: 20101125, end: 20101213
  6. FENTANYL [Concomitant]
     Route: 062
     Dates: start: 20100610
  7. ALLOPURINOL [Concomitant]
     Indication: PROPHYLAXIS
     Route: 048
     Dates: start: 20100219
  8. LANSOPRAZOLE [Concomitant]
     Route: 048
     Dates: start: 20070309
  9. CLODRONATE DISODIUM [Concomitant]
     Indication: OSTEOPOROSIS PROPHYLAXIS
     Route: 048
     Dates: start: 20100122
  10. DEXAMETHASONE [Suspect]
     Route: 065
     Dates: start: 20101125, end: 20101213
  11. ADCAL [Concomitant]
     Indication: OSTEOPOROSIS PROPHYLAXIS
     Route: 048
     Dates: start: 20090701
  12. FINASTERIDE [Concomitant]
     Route: 048
     Dates: start: 20080102
  13. ASPIRIN [Concomitant]
     Indication: PROPHYLAXIS
     Route: 048
     Dates: start: 20100604
  14. DEXAMETHASONE [Suspect]
     Indication: MULTIPLE MYELOMA
     Route: 065
     Dates: start: 20100219
  15. SIMVASTATIN [Concomitant]
     Route: 048
     Dates: start: 20070222
  16. TIMOLOL [Concomitant]
     Indication: GLAUCOMA
     Route: 047
     Dates: start: 20090203
  17. CC-5013 [Suspect]
     Indication: MULTIPLE MYELOMA
     Route: 048
     Dates: start: 20100219
  18. COTRIM [Concomitant]
     Indication: INFECTION PROPHYLAXIS
     Route: 048
     Dates: start: 20060219
  19. TRAVATAN [Concomitant]
     Indication: GLAUCOMA
     Route: 047
     Dates: start: 20040112
  20. TRUSOPT [Concomitant]
     Indication: GLAUCOMA
     Route: 047
     Dates: start: 20090305

REACTIONS (3)
  - NEUTROPENIC SEPSIS [None]
  - H1N1 INFLUENZA [None]
  - RESPIRATORY FAILURE [None]
